FAERS Safety Report 7141609-4 (Version None)
Quarter: 2010Q4

REPORT INFORMATION
  Report Type: 
  Country: None (occurrence: None)
  Receive Date: 20101202
  Receipt Date: 20101202
  Transmission Date: 20110411
  Serious: Yes (Life-Threatening, Hospitalization)
  Sender: FDA-Public Use
  Company Number: None

PATIENT
  Age: 77 Year
  Sex: Female
  Weight: 67.586 kg

DRUGS (1)
  1. ALLOPURINOL 100MG TAB [Suspect]
     Indication: GOUTY ARTHRITIS
     Dosage: 100MG QD PO
     Route: 048
     Dates: start: 20100901, end: 20101011

REACTIONS (1)
  - STEVENS-JOHNSON SYNDROME [None]
